FAERS Safety Report 10961652 (Version 3)
Quarter: 2019Q1

REPORT INFORMATION
  Report Type: Spontaneous
  Country: SE (occurrence: SE)
  Receive Date: 20150327
  Receipt Date: 20190122
  Transmission Date: 20190417
  Serious: Yes (Life-Threatening, Hospitalization)
  Sender: FDA-Public Use
  Company Number: SE-MUNDIPHARMA DS AND PHARMACOVIGILANCE-GBR-2015-0026552

PATIENT
  Age: 31 Year
  Sex: Female

DRUGS (4)
  1. DOLCONTIN [Suspect]
     Active Substance: MORPHINE
     Indication: SPINAL OPERATION
  2. DOLCONTIN [Suspect]
     Active Substance: MORPHINE
     Indication: SPINAL OPERATION
     Dosage: 5 MG, BID
     Route: 065
  3. PALEXIA [Suspect]
     Active Substance: TAPENTADOL HYDROCHLORIDE
     Indication: SPINAL OPERATION
     Dosage: 150 MG, DAILY
     Route: 065
  4. DOLCONTIN [Suspect]
     Active Substance: MORPHINE
     Indication: SURGERY
     Dosage: 20 MG, UNK
     Route: 065

REACTIONS (6)
  - Muscle spasms [Not Recovered/Not Resolved]
  - Anaphylactic shock [Unknown]
  - Dyspnoea [Unknown]
  - Hypotension [Unknown]
  - Bladder pain [Not Recovered/Not Resolved]
  - Urticaria [Not Recovered/Not Resolved]

NARRATIVE: CASE EVENT DATE: 201503
